FAERS Safety Report 8328827-4 (Version None)
Quarter: 2012Q2

REPORT INFORMATION
  Report Type: 
  Country: None (occurrence: None)
  Receive Date: 20120502
  Receipt Date: 20100830
  Transmission Date: 20120825
  Serious: No
  Sender: FDA-Public Use
  Company Number: US-TEVA-2010004634

PATIENT
  Sex: Female

DRUGS (5)
  1. NUVIGIL [Suspect]
     Dosage: 250 MILLIGRAM;
     Route: 048
     Dates: start: 20100101, end: 20100101
  2. FLONASE [Concomitant]
  3. NUVIGIL [Suspect]
     Indication: SLEEP APNOEA SYNDROME
     Dosage: 150 MILLIGRAM;
     Route: 048
     Dates: start: 20100101, end: 20100101
  4. MIRAPEX [Concomitant]
  5. DUONEB [Concomitant]

REACTIONS (2)
  - PSYCHOTIC DISORDER [None]
  - MOOD ALTERED [None]
